FAERS Safety Report 5352885-2 (Version None)
Quarter: 2007Q2

REPORT INFORMATION
  Report Type: 
  Country: None (occurrence: None)
  Receive Date: 20070518
  Receipt Date: 20070417
  Transmission Date: 20071010
  Serious: No
  Sender: FDA-Public Use
  Company Number: TPA2007A00809

PATIENT
  Age: 86 Year
  Sex: Male

DRUGS (12)
  1. ROZEREM [Suspect]
     Dosage: PER ORAL
     Route: 048
  2. LUNESTA [Concomitant]
  3. ATENOLOL [Concomitant]
  4. FELODIPINE [Concomitant]
  5. TRAMADOL HCL [Concomitant]
  6. POTASSIUM ACETATE [Concomitant]
  7. VITAMIN B [Concomitant]
  8. ASPIRIN [Concomitant]
  9. CALCIUM CHLORIDE [Concomitant]
  10. GLUCOSAMINE W/CHONDROITIN(GLUCOSAMINE, CHONDROITIN SULFATE) [Concomitant]
  11. MILK OF MAGNESIA TAB [Concomitant]
  12. PREDNISONE [Concomitant]

REACTIONS (1)
  - DRUG INEFFECTIVE [None]
